FAERS Safety Report 8117555-6 (Version None)
Quarter: 2012Q1

REPORT INFORMATION
  Report Type: 
  Country: None (occurrence: None)
  Receive Date: 20120207
  Receipt Date: 20120126
  Transmission Date: 20120608
  Serious: No
  Sender: FDA-Public Use
  Company Number: US-BIOGENIDEC-2012BI003365

PATIENT
  Age: 55 Year
  Sex: Female

DRUGS (2)
  1. TYSABRI [Suspect]
     Indication: MULTIPLE SCLEROSIS
     Route: 042
     Dates: start: 20070926
  2. BACLOFEN [Concomitant]
     Indication: MULTIPLE SCLEROSIS

REACTIONS (3)
  - DECREASED APPETITE [None]
  - NAUSEA [None]
  - PAIN IN EXTREMITY [None]
